FAERS Safety Report 10065023 (Version 2)
Quarter: 2014Q2

REPORT INFORMATION
  Report Type: Spontaneous
  Country: US (occurrence: US)
  Receive Date: 20140408
  Receipt Date: 20140524
  Transmission Date: 20141212
  Serious: Yes (Other)
  Sender: FDA-Public Use
  Company Number: US-AMGEN INC.-USASP2014023489

PATIENT
  Age: 61 Year
  Sex: Male

DRUGS (15)
  1. PROLIA [Suspect]
     Indication: PRODUCT USED FOR UNKNOWN INDICATION
     Dosage: 60 MG, Q6MO
     Route: 058
     Dates: start: 20120811
  2. PROLIA [Suspect]
     Dosage: UNK
     Route: 058
  3. PROLIA [Suspect]
     Dosage: UNK
     Route: 058
  4. CITRACAL MAXIMUM [Concomitant]
     Dosage: 1 DF, TID
     Route: 048
  5. ZYRTEC [Concomitant]
     Dosage: 10 MG, QD
     Route: 048
  6. ERGOCALCIFEROL [Concomitant]
     Dosage: 50000 IU, QMO
     Route: 048
  7. NEXIUM                             /01479302/ [Concomitant]
     Dosage: 40 MG, QD
     Route: 048
  8. NEURONTIN [Concomitant]
     Dosage: 600 MG, QD
     Route: 048
  9. MOTRIN [Concomitant]
     Dosage: 600 MG, AS NECESSARY
     Route: 048
  10. ANTIVERT                           /00072802/ [Concomitant]
     Dosage: 25 MG, AS NECESSARY
  11. MELATONIN [Concomitant]
     Dosage: 300 MUG, UNK
     Route: 048
  12. MULTIVITAMIN                       /00097801/ [Concomitant]
     Dosage: 1 DF, QD
     Route: 048
  13. TESTOSTERONE [Concomitant]
     Dosage: 5 G, QD
  14. ULTRAM ER [Concomitant]
     Dosage: 100 MG, BID
     Route: 048
  15. LEVITRA [Concomitant]
     Dosage: 20 MG, AS NECESSARY
     Route: 048

REACTIONS (4)
  - Osteomyelitis [Unknown]
  - Osteonecrosis of jaw [Unknown]
  - Pain in jaw [Recovered/Resolved]
  - Tooth extraction [Recovered/Resolved]
